FAERS Safety Report 6170654-0 (Version None)
Quarter: 2009Q2

REPORT INFORMATION
  Report Type: 
  Country: None (occurrence: None)
  Receive Date: 20090428
  Receipt Date: 20090421
  Transmission Date: 20091009
  Serious: Yes (Hospitalization, Other)
  Sender: FDA-Public Use
  Company Number: US-ABBOTT-08P-163-0489732-00

PATIENT
  Sex: Female
  Weight: 85.806 kg

DRUGS (12)
  1. HUMIRA [Suspect]
     Indication: CROHN'S DISEASE
     Route: 058
     Dates: start: 20060101, end: 20080901
  2. HUMIRA [Suspect]
     Route: 058
     Dates: start: 20080901
  3. CYMBALTA [Concomitant]
     Indication: DEPRESSION
  4. PRAVACHOL [Concomitant]
     Indication: BLOOD CHOLESTEROL INCREASED
  5. FLUTACASONE [Concomitant]
     Indication: HYPERSENSITIVITY
  6. LOPERAMIDE HCL [Concomitant]
     Indication: DIARRHOEA
  7. ALLEGRA [Concomitant]
     Indication: HYPERSENSITIVITY
  8. LEVOTHYROXINE SODIUM [Concomitant]
     Indication: HYPOTHYROIDISM
  9. HYDROCHLOROTHIAZIDE [Concomitant]
     Indication: HYPERTENSION
  10. ATACAND [Concomitant]
     Indication: HYPERTENSION
  11. DARVOCET [Concomitant]
     Indication: PAIN
  12. FOLIC ACID [Concomitant]
     Indication: CROHN'S DISEASE

REACTIONS (9)
  - ABDOMINAL DISTENSION [None]
  - ABDOMINAL PAIN [None]
  - CROHN'S DISEASE [None]
  - DEHYDRATION [None]
  - DIARRHOEA [None]
  - DRUG INEFFECTIVE [None]
  - INTESTINAL OBSTRUCTION [None]
  - PYREXIA [None]
  - WRONG TECHNIQUE IN DRUG USAGE PROCESS [None]
